FAERS Safety Report 17032699 (Version 1)
Quarter: 2019Q4

REPORT INFORMATION
  Report Type: Spontaneous
  Country: DE (occurrence: DE)
  Receive Date: 20191114
  Receipt Date: 20191114
  Transmission Date: 20200122
  Serious: Yes (Other)
  Sender: FDA-Public Use
  Company Number: DE-SEATTLE GENETICS-2019SGN03406

PATIENT
  Age: 40 Year
  Sex: Female
  Weight: 52 kg

DRUGS (8)
  1. COTRIM [Concomitant]
     Active Substance: SULFAMETHOXAZOLE\TRIMETHOPRIM
     Indication: PROPHYLAXIS
     Dosage: 2880 MILLIGRAM, 1/WEEK
     Route: 065
     Dates: start: 20190412
  2. L-THYROXINE                        /00068001/ [Concomitant]
     Active Substance: LEVOTHYROXINE
     Indication: HYPOTHYROIDISM
     Dosage: UNK, QD
  3. ACICLOVIR [Concomitant]
     Active Substance: ACYCLOVIR
     Indication: HERPES ZOSTER
     Dosage: 800 MILLIGRAM, QD
     Route: 065
     Dates: start: 20190412
  4. ADCETRIS [Suspect]
     Active Substance: BRENTUXIMAB VEDOTIN
     Dosage: 1.8 MILLIGRAM/KILOGRAM
     Route: 042
     Dates: start: 20190412, end: 20190822
  5. ADCETRIS [Suspect]
     Active Substance: BRENTUXIMAB VEDOTIN
     Dosage: 1.2 MILLIGRAM/KILOGRAM
     Route: 042
     Dates: start: 20190822
  6. ADCETRIS [Suspect]
     Active Substance: BRENTUXIMAB VEDOTIN
     Indication: CUTANEOUS T-CELL LYMPHOMA
     Dosage: 1.2 MILLIGRAM/KILOGRAM
     Route: 042
     Dates: start: 20190503
  7. LEVETIRACETAM. [Concomitant]
     Active Substance: LEVETIRACETAM
     Indication: EPILEPSY
     Dosage: 10 MILLIGRAM
     Route: 065
     Dates: start: 201904
  8. METHOTREXATE. [Concomitant]
     Active Substance: METHOTREXATE
     Dosage: UNK
     Route: 065
     Dates: end: 20090112

REACTIONS (4)
  - Alanine aminotransferase increased [Recovered/Resolved]
  - Hepatotoxicity [Recovered/Resolved with Sequelae]
  - Aspartate aminotransferase increased [Recovered/Resolved]
  - Cutaneous T-cell lymphoma recurrent [Unknown]

NARRATIVE: CASE EVENT DATE: 2019
